FAERS Safety Report 9603336 (Version 3)
Quarter: 2013Q4

REPORT INFORMATION
  Report Type: Report from Study
  Country: ES (occurrence: ES)
  Receive Date: 20131007
  Receipt Date: 20131119
  Transmission Date: 20140711
  Serious: Yes (Death, Other)
  Sender: FDA-Public Use
  Company Number: ES-SA-CLOF-1002550

PATIENT
  Age: 7 Year
  Sex: Female

DRUGS (1)
  1. CLOFARABINE [Suspect]
     Indication: PRODUCT USED FOR UNKNOWN INDICATION
     Dosage: UNK
     Route: 042
     Dates: end: 20120601

REACTIONS (6)
  - Acute graft versus host disease in liver [Unknown]
  - Cardiac tamponade [Unknown]
  - Intracardiac mass [Unknown]
  - Renal mass [Unknown]
  - Disease progression [Unknown]
  - Death [Fatal]
